FAERS Safety Report 11336654 (Version 1)
Quarter: 2015Q3

REPORT INFORMATION
  Report Type: Report from Study
  Country: BR (occurrence: BR)
  Receive Date: 20150804
  Receipt Date: 20150804
  Transmission Date: 20151125
  Serious: Yes (Other)
  Sender: FDA-Public Use
  Company Number: PHHY2014BR174233

PATIENT
  Sex: Male
  Weight: 81 kg

DRUGS (4)
  1. COLISTIN [Suspect]
     Active Substance: COLISTIN
     Indication: CYSTIC FIBROSIS LUNG
     Dosage: 2 DF, Q12H (MORNING AND EVENING)
     Route: 065
  2. TOBRAMYCIN. [Suspect]
     Active Substance: TOBRAMYCIN
     Indication: PRODUCT USED FOR UNKNOWN INDICATION
     Dosage: UNK
     Route: 065
  3. ZOTEON PODHALER [Suspect]
     Active Substance: TOBRAMYCIN
     Indication: CYSTIC FIBROSIS
     Dosage: 2 DF, BID (2 TABLET MORNING AND 2 TABLET NIGHT)
     Route: 065
     Dates: start: 20140805
  4. AZITHROMYCIN [Concomitant]
     Active Substance: AZITHROMYCIN ANHYDROUS
     Indication: CHRONIC SINUSITIS
     Dosage: 1 DF, QID
     Route: 065

REACTIONS (6)
  - Cystic fibrosis [Unknown]
  - Dyspnoea [Unknown]
  - Respiratory disorder [Unknown]
  - Cystic fibrosis lung [Unknown]
  - Chest discomfort [Unknown]
  - Bacterial disease carrier [Unknown]
